FAERS Safety Report 19472652 (Version 3)
Quarter: 2021Q3

REPORT INFORMATION
  Report Type: Spontaneous
  Country: RU (occurrence: RU)
  Receive Date: 20210629
  Receipt Date: 20210804
  Transmission Date: 20211014
  Serious: Yes (Death, Life-Threatening, Hospitalization, Other)
  Sender: FDA-Public Use
  Company Number: RU-009507513-2106RUS007050

PATIENT
  Sex: Male

DRUGS (1)
  1. KEYTRUDA [Suspect]
     Active Substance: PEMBROLIZUMAB
     Indication: GASTRIC CANCER
     Dosage: 200 MG PER 21 DAY
     Route: 042
     Dates: start: 20191015, end: 20200423

REACTIONS (4)
  - Biliary obstruction [Fatal]
  - COVID-19 [Fatal]
  - Autoimmune hepatitis [Not Recovered/Not Resolved]
  - Jaundice cholestatic [Fatal]

NARRATIVE: CASE EVENT DATE: 20200423
